FAERS Safety Report 12342020 (Version 1)
Quarter: 2016Q2

REPORT INFORMATION
  Report Type: Spontaneous
  Country: TR (occurrence: TR)
  Receive Date: 20160506
  Receipt Date: 20160506
  Transmission Date: 20160815
  Serious: Yes (Hospitalization, Other)
  Sender: FDA-Public Use
  Company Number: TR-BAYER-2016-080252

PATIENT
  Age: 46 Year
  Sex: Male

DRUGS (2)
  1. CLOPIDOGREL [Suspect]
     Active Substance: CLOPIDOGREL BISULFATE
  2. ACETYLSALICYLIC ACID (} 100 MG) [Suspect]
     Active Substance: ASPIRIN

REACTIONS (12)
  - Pulmonary embolism [None]
  - Dilatation ventricular [None]
  - Dyspnoea [None]
  - Hypotension [None]
  - Tachypnoea [None]
  - Ejection fraction decreased [None]
  - Pulmonary arterial pressure increased [None]
  - Catheter site bruise [None]
  - Tachycardia [None]
  - Echocardiogram abnormal [None]
  - Tricuspid valve incompetence [None]
  - Oxygen saturation decreased [None]
